FAERS Safety Report 5266685-5 (Version None)
Quarter: 2007Q1

REPORT INFORMATION
  Report Type: 
  Country: None (occurrence: None)
  Receive Date: 20070312
  Receipt Date: 20070226
  Transmission Date: 20070707
  Serious: Yes (Hospitalization)
  Sender: FDA-Public Use
  Company Number: B0460852A

PATIENT
  Age: 51 Year
  Sex: Female

DRUGS (2)
  1. LITHIUM SALT (FORMULATION UNKNOWN) (LITHIUM SALT) [Suspect]
     Indication: AFFECTIVE DISORDER
  2. LEVOTHYROXINE SODIUM [Concomitant]

REACTIONS (8)
  - GOITRE [None]
  - HYPOTHYROIDISM [None]
  - KIDNEY FIBROSIS [None]
  - NEPHROGENIC DIABETES INSIPIDUS [None]
  - NEPHROPATHY [None]
  - OEDEMA PERIPHERAL [None]
  - RENAL CYST [None]
  - RENAL TUBULAR ATROPHY [None]
